FAERS Safety Report 7553360-7 (Version None)
Quarter: 2011Q2

REPORT INFORMATION
  Report Type: 
  Country: None (occurrence: None)
  Receive Date: 20110617
  Receipt Date: 20110407
  Transmission Date: 20111010
  Serious: No
  Sender: FDA-Public Use
  Company Number: A0894691A

PATIENT
  Age: 84 Year
  Sex: Male

DRUGS (7)
  1. PREDNISONE [Concomitant]
  2. ATENOLOL [Concomitant]
  3. PRILOSEC [Concomitant]
  4. PROMACTA [Suspect]
     Indication: IDIOPATHIC THROMBOCYTOPENIC PURPURA
     Dosage: 50MG PER DAY
     Route: 048
     Dates: start: 20101102, end: 20101123
  5. ZYRTEC [Concomitant]
  6. BRIMONIDINE [Concomitant]
  7. TERAZOSIN HCL [Concomitant]

REACTIONS (3)
  - RASH ERYTHEMATOUS [None]
  - PLATELET COUNT DECREASED [None]
  - BLOOD COUNT ABNORMAL [None]
